FAERS Safety Report 10707930 (Version 1)
Quarter: 2015Q1

REPORT INFORMATION
  Report Type: Spontaneous
  Country: US (occurrence: US)
  Receive Date: 20150113
  Receipt Date: 20150113
  Transmission Date: 20150721
  Serious: Yes (Death)
  Sender: FDA-Public Use
  Company Number: US-BAYER-2015-003587

PATIENT
  Age: 30 Year

DRUGS (4)
  1. DIPHENHYDRAMINE HYDROCHLORIDE. [Suspect]
     Active Substance: DIPHENHYDRAMINE HYDROCHLORIDE
     Route: 048
  2. METHANOL [Suspect]
     Active Substance: METHYL ALCOHOL
     Route: 048
  3. CLONAZEPAM. [Suspect]
     Active Substance: CLONAZEPAM
     Route: 048
  4. BUPROPION [Suspect]
     Active Substance: BUPROPION
     Route: 048

REACTIONS (1)
  - Toxicity to various agents [Fatal]
